FAERS Safety Report 11326333 (Version 1)
Quarter: 2015Q3

REPORT INFORMATION
  Report Type: Report from Study
  Country: CA (occurrence: None)
  Receive Date: 20150729
  Receipt Date: 20150729
  Transmission Date: 20151125
  Serious: Yes (Hospitalization)
  Sender: FDA-Public Use
  Company Number: 2014FE01600

PATIENT
  Age: 55 Year
  Sex: Male

DRUGS (10)
  1. METOPROLOL (METOPROLOL TARTRATE) [Concomitant]
     Active Substance: METOPROLOL TARTRATE
  2. PMS ASA EC (ACETYLSALICYLIC ACID) [Concomitant]
  3. ATORVASTATIN (ATORVASTATIN) [Concomitant]
     Active Substance: ATORVASTATIN
  4. AMLODIPINE [Concomitant]
     Active Substance: AMLODIPINE BESYLATE
  5. TOPISON (CLOBETASONE BUTYRATE) [Concomitant]
  6. Z-PLUS (MENTHOL) [Concomitant]
  7. ATACAND [Concomitant]
     Active Substance: CANDESARTAN CILEXETIL
  8. LOPROX (CICLOPIROX OLAMINE) [Concomitant]
  9. PANTOPRAZOLE (PANTOPRAZOLE) [Concomitant]
     Active Substance: PANTOPRAZOLE SODIUM
  10. DEGARELIX (DEGARELIX) POWDER AND SOLVENT FOR SOLUTION FOR INJECTION [Suspect]
     Active Substance: DEGARELIX
     Indication: PROSTATE CANCER
     Route: 058

REACTIONS (12)
  - Malaise [None]
  - Injection site swelling [None]
  - Injection site warmth [None]
  - Headache [None]
  - Injection site erythema [None]
  - Rectal haemorrhage [None]
  - Erythema [None]
  - Oedema [None]
  - Abdominal pain [None]
  - Injection site pain [None]
  - Nocturia [None]
  - Injection site induration [None]

NARRATIVE: CASE EVENT DATE: 20140730
